FAERS Safety Report 5639907-6 (Version None)
Quarter: 2008Q1

REPORT INFORMATION
  Report Type: 
  Country: None (occurrence: None)
  Receive Date: 20080225
  Receipt Date: 20080215
  Transmission Date: 20080703
  Serious: Yes (Hospitalization)
  Sender: FDA-Public Use
  Company Number: B0508755A

PATIENT
  Age: 48 Year
  Sex: Female

DRUGS (3)
  1. AUGMENTIN [Suspect]
     Indication: LUNG ABSCESS
     Dosage: 1 GRAM(S), PER DAY, INTRAVENOUS
     Route: 042
     Dates: start: 20071029, end: 20071102
  2. AMOXICILLIN [Suspect]
     Indication: LUNG ABSCESS
     Dosage: INTRAVENOUS
     Route: 042
     Dates: start: 20071103, end: 20071103
  3. AMOXIL [Suspect]
     Indication: LUNG ABSCESS
     Dosage: ORAL
     Route: 048
     Dates: start: 20071104, end: 20071108

REACTIONS (4)
  - ERYTHEMA [None]
  - LYMPHADENOPATHY [None]
  - PRURITUS [None]
  - RASH MACULO-PAPULAR [None]
